FAERS Safety Report 21618035 (Version 6)
Quarter: 2023Q4

REPORT INFORMATION
  Report Type: Report from Study
  Country: CN (occurrence: CN)
  Receive Date: 20221119
  Receipt Date: 20231117
  Transmission Date: 20240109
  Serious: Yes (Life-Threatening, Hospitalization, Disabling, Other)
  Sender: FDA-Public Use
  Company Number: CN-002147023-NVSC2022CN260458

PATIENT
  Age: 43 Year
  Sex: Male
  Weight: 80 kg

DRUGS (100)
  1. COSENTYX [Suspect]
     Active Substance: SECUKINUMAB
     Indication: Psoriasis
     Dosage: 300 MG, QW
     Route: 065
     Dates: start: 20220518
  2. COSENTYX [Suspect]
     Active Substance: SECUKINUMAB
     Dosage: 300 MG, QW
     Route: 065
     Dates: start: 20220525
  3. COSENTYX [Suspect]
     Active Substance: SECUKINUMAB
     Dosage: 300 MG, QW
     Route: 065
     Dates: start: 20220601
  4. COSENTYX [Suspect]
     Active Substance: SECUKINUMAB
     Dosage: 300 MG, QW
     Route: 065
     Dates: start: 20220608
  5. COSENTYX [Suspect]
     Active Substance: SECUKINUMAB
     Dosage: 300 MG, QW
     Route: 065
     Dates: start: 20220615
  6. COSENTYX [Suspect]
     Active Substance: SECUKINUMAB
     Dosage: UNK
     Route: 065
     Dates: start: 20230222
  7. TENOFOVIR DISOPROXIL FUMARATE [Concomitant]
     Active Substance: TENOFOVIR DISOPROXIL FUMARATE
     Indication: Chronic hepatitis B
     Dosage: 300 MG, QD
     Route: 048
     Dates: start: 20210915
  8. BICYCLOL [Concomitant]
     Active Substance: BICYCLOL
     Indication: Chronic hepatitis B
     Dosage: 25 MG, TID
     Route: 048
  9. GLUTATHIONE [Concomitant]
     Active Substance: GLUTATHIONE
     Indication: Chronic hepatitis B
     Dosage: UNK
     Route: 048
  10. GLUTATHIONE [Concomitant]
     Active Substance: GLUTATHIONE
     Dosage: 0.4 G, TID
     Route: 048
  11. DIETARY SUPPLEMENT\HERBALS\MILK THISTLE [Concomitant]
     Active Substance: MILK THISTLE
     Indication: Chronic hepatitis B
     Dosage: 0.4 G, TID
     Route: 048
  12. METOPROLOL SUCCINATE [Concomitant]
     Active Substance: METOPROLOL SUCCINATE
     Indication: Cardiovascular event prophylaxis
     Dosage: 47.5 MG
     Route: 065
     Dates: start: 20230215, end: 20230228
  13. METOPROLOL SUCCINATE [Concomitant]
     Active Substance: METOPROLOL SUCCINATE
     Dosage: 47.5 MG
     Route: 065
     Dates: start: 20230311, end: 20230318
  14. METOPROLOL SUCCINATE [Concomitant]
     Active Substance: METOPROLOL SUCCINATE
     Dosage: 71.25 MG
     Route: 065
     Dates: start: 20230319, end: 20230319
  15. METOPROLOL SUCCINATE [Concomitant]
     Active Substance: METOPROLOL SUCCINATE
     Dosage: 47.5 MG
     Route: 065
     Dates: start: 20230320, end: 20230328
  16. METOPROLOL SUCCINATE [Concomitant]
     Active Substance: METOPROLOL SUCCINATE
     Dosage: 95 MG
     Route: 065
     Dates: start: 20230329, end: 20230329
  17. METOPROLOL SUCCINATE [Concomitant]
     Active Substance: METOPROLOL SUCCINATE
     Dosage: 47.5 MG
     Route: 065
     Dates: start: 20230330, end: 20230330
  18. LEVOTHYROXINE SODIUM [Concomitant]
     Active Substance: LEVOTHYROXINE SODIUM
     Indication: Hypothyroidism
     Dosage: 50 UG
     Route: 065
     Dates: start: 20230214, end: 20230402
  19. LEVOTHYROXINE SODIUM [Concomitant]
     Active Substance: LEVOTHYROXINE SODIUM
     Indication: Thyroid therapy
  20. POTASSIUM CHLORIDE [Concomitant]
     Active Substance: POTASSIUM CHLORIDE
     Indication: Mineral supplementation
     Dosage: 30 ML
     Route: 065
     Dates: start: 20230214
  21. POTASSIUM CHLORIDE [Concomitant]
     Active Substance: POTASSIUM CHLORIDE
     Dosage: 20 ML
     Route: 065
     Dates: start: 20230215
  22. POTASSIUM CHLORIDE [Concomitant]
     Active Substance: POTASSIUM CHLORIDE
     Dosage: 30 ML
     Route: 065
     Dates: start: 202302
  23. POTASSIUM CHLORIDE [Concomitant]
     Active Substance: POTASSIUM CHLORIDE
     Dosage: 30 ML
     Route: 065
     Dates: start: 20230303, end: 20230322
  24. POTASSIUM CHLORIDE [Concomitant]
     Active Substance: POTASSIUM CHLORIDE
     Dosage: 20 ML
     Route: 065
     Dates: start: 20230325
  25. POTASSIUM CHLORIDE [Concomitant]
     Active Substance: POTASSIUM CHLORIDE
     Dosage: 40 ML
     Route: 065
     Dates: start: 20230331, end: 20230331
  26. POTASSIUM CHLORIDE [Concomitant]
     Active Substance: POTASSIUM CHLORIDE
     Dosage: 40 ML
     Route: 065
     Dates: start: 20230403, end: 20230404
  27. CEFUROXIME SODIUM [Concomitant]
     Active Substance: CEFUROXIME SODIUM
     Indication: Anti-infective therapy
     Dosage: 2.25 G
     Route: 065
     Dates: start: 20230216, end: 20230217
  28. CEFUROXIME SODIUM [Concomitant]
     Active Substance: CEFUROXIME SODIUM
     Dosage: 2.25 G
     Route: 065
     Dates: start: 20230228, end: 20230302
  29. CEFUROXIME SODIUM [Concomitant]
     Active Substance: CEFUROXIME SODIUM
     Dosage: 2.25 G
     Route: 065
     Dates: start: 20230307, end: 20230309
  30. CEFOPERAZONE SODIUM\SULBACTAM SODIUM [Concomitant]
     Active Substance: CEFOPERAZONE SODIUM\SULBACTAM SODIUM
     Indication: Anti-infective therapy
     Dosage: 6 G
     Route: 065
     Dates: start: 20230217, end: 20230224
  31. CEFOPERAZONE SODIUM\SULBACTAM SODIUM [Concomitant]
     Active Substance: CEFOPERAZONE SODIUM\SULBACTAM SODIUM
     Dosage: 6 G
     Route: 065
     Dates: start: 20230320, end: 20230322
  32. ACETYLCYSTEINE [Concomitant]
     Active Substance: ACETYLCYSTEINE
     Indication: Bronchiectasis
     Dosage: 0.9 G
     Route: 065
     Dates: start: 20230217, end: 20230224
  33. ACETYLCYSTEINE [Concomitant]
     Active Substance: ACETYLCYSTEINE
     Indication: Sputum purulent
     Dosage: 0.9 G
     Route: 065
     Dates: start: 20230228, end: 20230304
  34. ACETYLCYSTEINE [Concomitant]
     Active Substance: ACETYLCYSTEINE
     Dosage: 0.9 G
     Route: 065
     Dates: start: 20230307, end: 20230310
  35. ACETYLCYSTEINE [Concomitant]
     Active Substance: ACETYLCYSTEINE
     Dosage: 0.9 G
     Route: 065
     Dates: start: 20230311, end: 20230311
  36. BUDESONIDE [Concomitant]
     Active Substance: BUDESONIDE
     Indication: Bronchiectasis
     Dosage: 3 MG (SUSPENSION FOR INHALATION)
     Dates: start: 20230217, end: 20230224
  37. BUDESONIDE [Concomitant]
     Active Substance: BUDESONIDE
     Dosage: 3 MG (SUSPENSION FOR INHALATION)
     Dates: start: 20230228, end: 20230304
  38. BUDESONIDE [Concomitant]
     Active Substance: BUDESONIDE
     Dosage: 3 MG (SUSPENSION FOR INHALATION)
     Dates: start: 20230307, end: 20230310
  39. AMBROXOL HYDROCHLORIDE [Concomitant]
     Active Substance: AMBROXOL HYDROCHLORIDE
     Indication: Sputum purulent
     Dosage: 30 MG
     Route: 065
     Dates: start: 20230217, end: 20230226
  40. AMBROXOL HYDROCHLORIDE [Concomitant]
     Active Substance: AMBROXOL HYDROCHLORIDE
     Dosage: 60 MG
     Route: 065
     Dates: start: 20230324, end: 20230402
  41. ALBUMIN HUMAN [Concomitant]
     Active Substance: ALBUMIN HUMAN
     Indication: Cerebral hypoperfusion
     Dosage: 100 ML
     Route: 065
     Dates: start: 20230217, end: 20230217
  42. ALBUMIN HUMAN [Concomitant]
     Active Substance: ALBUMIN HUMAN
     Dosage: 100 ML
     Route: 065
     Dates: start: 20230301, end: 20230301
  43. ALBUMIN HUMAN [Concomitant]
     Active Substance: ALBUMIN HUMAN
     Dosage: 100 ML
     Route: 065
     Dates: start: 20230308, end: 20230308
  44. ALBUMIN HUMAN [Concomitant]
     Active Substance: ALBUMIN HUMAN
     Dosage: 100 ML
     Route: 065
     Dates: start: 20230311, end: 20230311
  45. ALBUMIN HUMAN [Concomitant]
     Active Substance: ALBUMIN HUMAN
     Dosage: 100 ML
     Route: 065
     Dates: start: 20230317, end: 20230317
  46. ALBUMIN HUMAN [Concomitant]
     Active Substance: ALBUMIN HUMAN
     Dosage: 10 G
     Route: 065
     Dates: start: 20230329, end: 20230329
  47. ALBUMIN HUMAN [Concomitant]
     Active Substance: ALBUMIN HUMAN
     Dosage: 100 ML
     Route: 065
     Dates: start: 20230330, end: 20230330
  48. ALBUMIN HUMAN [Concomitant]
     Active Substance: ALBUMIN HUMAN
     Dosage: 50 ML
     Route: 065
     Dates: start: 20230331, end: 20230331
  49. GLYCERIN [Concomitant]
     Active Substance: GLYCERIN
     Indication: Defaecation disorder
     Dosage: 80 ML
     Route: 065
     Dates: start: 20230223, end: 20230223
  50. GLYCERIN [Concomitant]
     Active Substance: GLYCERIN
     Dosage: 80 ML
     Route: 065
     Dates: start: 20230227, end: 20230227
  51. GLYCERIN [Concomitant]
     Active Substance: GLYCERIN
     Dosage: 80 ML
     Route: 065
     Dates: start: 20230303, end: 20230303
  52. CALCIUM CHLORIDE\POTASSIUM CHLORIDE\SODIUM CHLORIDE [Concomitant]
     Active Substance: CALCIUM CHLORIDE\POTASSIUM CHLORIDE\SODIUM CHLORIDE
     Indication: Fluid replacement
     Dosage: 500 ML
     Route: 065
     Dates: start: 20230301, end: 20230308
  53. CALCIUM CHLORIDE\POTASSIUM CHLORIDE\SODIUM CHLORIDE [Concomitant]
     Active Substance: CALCIUM CHLORIDE\POTASSIUM CHLORIDE\SODIUM CHLORIDE
     Dosage: 1000 ML
     Route: 065
     Dates: start: 20230309, end: 20230309
  54. CALCIUM CHLORIDE\POTASSIUM CHLORIDE\SODIUM CHLORIDE [Concomitant]
     Active Substance: CALCIUM CHLORIDE\POTASSIUM CHLORIDE\SODIUM CHLORIDE
     Dosage: 500 ML
     Route: 065
     Dates: start: 20230310, end: 20230310
  55. CALCIUM CHLORIDE\POTASSIUM CHLORIDE\SODIUM CHLORIDE [Concomitant]
     Active Substance: CALCIUM CHLORIDE\POTASSIUM CHLORIDE\SODIUM CHLORIDE
     Dosage: 500 ML
     Route: 065
     Dates: start: 20230315, end: 20230315
  56. CALCIUM CHLORIDE\POTASSIUM CHLORIDE\SODIUM CHLORIDE [Concomitant]
     Active Substance: CALCIUM CHLORIDE\POTASSIUM CHLORIDE\SODIUM CHLORIDE
     Dosage: 500 ML
     Route: 065
     Dates: start: 20230320, end: 20230320
  57. DIMEVAMIDE [Concomitant]
     Indication: Nutritional supplementation
     Dosage: 320 G
     Route: 065
     Dates: start: 20230304, end: 20230304
  58. DIMEVAMIDE [Concomitant]
     Dosage: 320 G
     Route: 065
     Dates: start: 20230306, end: 20230306
  59. DIMEVAMIDE [Concomitant]
     Dosage: 320 G
     Route: 065
     Dates: start: 20230311, end: 20230311
  60. DIMEVAMIDE [Concomitant]
     Dosage: 320 G
     Route: 065
     Dates: start: 20230314, end: 20230314
  61. DIMEVAMIDE [Concomitant]
     Dosage: 320 G
     Route: 065
     Dates: start: 20230320, end: 20230320
  62. VANCOMYCIN HYDROCHLORIDE [Concomitant]
     Active Substance: VANCOMYCIN HYDROCHLORIDE
     Indication: Anti-infective therapy
     Dosage: 2000 MG
     Route: 065
     Dates: start: 20230309, end: 20230320
  63. VANCOMYCIN HYDROCHLORIDE [Concomitant]
     Active Substance: VANCOMYCIN HYDROCHLORIDE
     Dosage: 2000 MG
     Route: 065
     Dates: start: 20230323, end: 20230330
  64. DEXAMETHASONE SODIUM PHOSPHATE [Concomitant]
     Active Substance: DEXAMETHASONE SODIUM PHOSPHATE
     Indication: Anaphylaxis prophylaxis
     Dosage: 12.5 MG
     Route: 065
     Dates: start: 20230309, end: 20230309
  65. LEVETIRACETAM [Concomitant]
     Active Substance: LEVETIRACETAM
     Indication: Epilepsy
     Dosage: 1 G
     Route: 065
     Dates: start: 20230302, end: 20230402
  66. AMINOPHYLLINE [Concomitant]
     Active Substance: AMINOPHYLLINE
     Indication: Asthma
     Dosage: 0.25 G
     Route: 065
     Dates: start: 20230312, end: 20230314
  67. AMINOPHYLLINE [Concomitant]
     Active Substance: AMINOPHYLLINE
     Dosage: 0.5 G
     Route: 065
     Dates: start: 20230315
  68. AMINOPHYLLINE [Concomitant]
     Active Substance: AMINOPHYLLINE
     Dosage: 0.25 G
     Route: 065
     Dates: start: 20230316, end: 20230318
  69. AMINOPHYLLINE [Concomitant]
     Active Substance: AMINOPHYLLINE
     Dosage: 0.25 G
     Route: 065
     Dates: start: 20230320
  70. AMINOPHYLLINE [Concomitant]
     Active Substance: AMINOPHYLLINE
     Dosage: 0.5 G
     Route: 065
     Dates: start: 20230319, end: 20230319
  71. AMINOPHYLLINE [Concomitant]
     Active Substance: AMINOPHYLLINE
     Dosage: 0.25 G
     Route: 065
     Dates: start: 20230322
  72. AMINOPHYLLINE [Concomitant]
     Active Substance: AMINOPHYLLINE
     Dosage: 0.5 G
     Route: 065
     Dates: start: 20230325
  73. LEVOFLOXACIN;SODIUM CHLORIDE [Concomitant]
     Indication: Anti-infective therapy
     Dosage: 100 ML
     Route: 065
     Dates: start: 20230312, end: 20230314
  74. MONTMORILLONITE [Concomitant]
     Active Substance: MONTMORILLONITE
     Indication: Antidiarrhoeal supportive care
     Dosage: 9 G (POWDER)
     Route: 065
     Dates: start: 20230309, end: 20230321
  75. COLISTIN SULFATE [Concomitant]
     Active Substance: COLISTIN SULFATE
     Indication: Anti-infective therapy
     Dosage: 100 UW
     Route: 065
     Dates: start: 20230314, end: 20230321
  76. COLISTIN SULFATE [Concomitant]
     Active Substance: COLISTIN SULFATE
     Dosage: 100 UW
     Route: 065
     Dates: start: 20230329, end: 20230402
  77. DEXTROSE [Concomitant]
     Active Substance: DEXTROSE\DEXTROSE MONOHYDRATE
     Indication: Supplementation therapy
     Dosage: 500 ML
     Route: 065
     Dates: start: 20230309, end: 20230309
  78. DEXTROSE [Concomitant]
     Active Substance: DEXTROSE\DEXTROSE MONOHYDRATE
     Dosage: 500 ML
     Route: 065
     Dates: start: 20230313, end: 20230313
  79. DEXTROSE [Concomitant]
     Active Substance: DEXTROSE\DEXTROSE MONOHYDRATE
     Dosage: 500 ML
     Route: 065
     Dates: start: 20230320, end: 20230320
  80. DEXTROSE [Concomitant]
     Active Substance: DEXTROSE\DEXTROSE MONOHYDRATE
     Dosage: 500 ML
     Route: 065
     Dates: start: 20230329, end: 20230329
  81. MULTITRACE [Concomitant]
     Active Substance: CHROMIC CHLORIDE\CUPRIC CHLORIDE\MANGANESE CHLORIDE\ZINC CHLORIDE
     Indication: Nutritional supplementation
     Dosage: 1 DOSAGE FORM (BOX) (ELEMENTS)
     Route: 065
     Dates: start: 20230312, end: 20230314
  82. MULTITRACE [Concomitant]
     Active Substance: CHROMIC CHLORIDE\CUPRIC CHLORIDE\MANGANESE CHLORIDE\ZINC CHLORIDE
     Dosage: 2 DOSAGE FORM (BOX) (ELEMENTS)
     Route: 065
     Dates: start: 20230315, end: 20230315
  83. MULTITRACE [Concomitant]
     Active Substance: CHROMIC CHLORIDE\CUPRIC CHLORIDE\MANGANESE CHLORIDE\ZINC CHLORIDE
     Dosage: 1 DOSAGE FORM (BOX) (ELEMENTS)
     Route: 065
     Dates: start: 20230316, end: 20230322
  84. SODIUM CHLORIDE [Concomitant]
     Active Substance: SODIUM CHLORIDE
     Indication: Electrolyte substitution therapy
     Dosage: 60 ML
     Route: 065
     Dates: start: 20230317, end: 20230317
  85. DOPAMINE HYDROCHLORIDE [Concomitant]
     Active Substance: DOPAMINE HYDROCHLORIDE
     Indication: Blood pressure increased
     Dosage: 400 MG
     Route: 065
     Dates: start: 20230320, end: 20230322
  86. DOPAMINE HYDROCHLORIDE [Concomitant]
     Active Substance: DOPAMINE HYDROCHLORIDE
     Dosage: 400 MG
     Route: 065
     Dates: start: 20230329, end: 20230329
  87. DOPAMINE HYDROCHLORIDE [Concomitant]
     Active Substance: DOPAMINE HYDROCHLORIDE
     Dosage: 200 MG
     Route: 065
     Dates: start: 20230330, end: 20230330
  88. MIDAZOLAM [Concomitant]
     Active Substance: MIDAZOLAM
     Indication: Sedative therapy
     Dosage: 60 MG
     Route: 065
     Dates: start: 20230320, end: 20230321
  89. RABEPRAZOLE SODIUM [Concomitant]
     Active Substance: RABEPRAZOLE SODIUM
     Indication: Gastrointestinal disorder prophylaxis
     Dosage: 40 MG
     Route: 065
     Dates: start: 20230323, end: 20230402
  90. TOBRAMYCIN [Concomitant]
     Active Substance: TOBRAMYCIN
     Indication: Anti-infective therapy
     Dosage: 0.4 ML
     Route: 065
     Dates: start: 20230323, end: 20230402
  91. DOXYCYCLINE [Concomitant]
     Active Substance: DOXYCYCLINE
     Indication: Anti-infective therapy
     Dosage: 200 MG
     Route: 065
     Dates: start: 20230330, end: 20230330
  92. SODIUM BICARBONATE [Concomitant]
     Active Substance: SODIUM BICARBONATE
     Indication: Acidosis
     Dosage: 60 ML
     Route: 065
     Dates: start: 20230329, end: 20230329
  93. SODIUM BICARBONATE [Concomitant]
     Active Substance: SODIUM BICARBONATE
     Dosage: 125 ML
     Route: 065
     Dates: start: 20230330, end: 20230402
  94. TIGECYCLINE [Concomitant]
     Active Substance: TIGECYCLINE
     Indication: Anti-infective therapy
     Dosage: 100 MG
     Route: 065
     Dates: start: 20230330, end: 20230402
  95. VITAMIN B6 [Concomitant]
     Active Substance: PYRIDOXINE HYDROCHLORIDE
     Indication: Vitamin supplementation
     Dosage: 0.1 G
     Route: 065
     Dates: start: 20230330, end: 20230330
  96. CEFTAZIDIME [Concomitant]
     Active Substance: CEFTAZIDIME
     Indication: Anti-infective therapy
     Dosage: 20 G
     Route: 065
     Dates: start: 20230330, end: 20230402
  97. AVIBACTAM SODIUM [Concomitant]
     Active Substance: AVIBACTAM SODIUM
     Indication: Anti-infective therapy
     Dosage: 20 G
     Route: 065
     Dates: start: 20230330, end: 20230402
  98. SODIUM CHLORIDE [Concomitant]
     Active Substance: SODIUM CHLORIDE
     Indication: Electrolyte substitution therapy
     Dosage: 500 ML
     Route: 065
     Dates: start: 20230329, end: 20230329
  99. POTASSIUM CHLORIDE [Concomitant]
     Active Substance: POTASSIUM CHLORIDE
     Indication: Cardiovascular event prophylaxis
     Dosage: 17 ML
     Route: 065
     Dates: start: 20230329, end: 20230329
  100. MAGNESIUM SULFATE [Concomitant]
     Active Substance: MAGNESIUM SULFATE\MAGNESIUM SULFATE HEPTAHYDRATE
     Indication: Cardiovascular event prophylaxis
     Dosage: 17 ML
     Route: 065
     Dates: start: 20230329, end: 20230329

REACTIONS (12)
  - Quadriplegia [Not Recovered/Not Resolved]
  - Coma [Unknown]
  - Pneumonia acinetobacter [Unknown]
  - Productive cough [Unknown]
  - Pyrexia [Recovered/Resolved with Sequelae]
  - Cerebral haemorrhage [Not Recovered/Not Resolved]
  - Diabetes mellitus [Not Recovered/Not Resolved]
  - Hypotension [Recovering/Resolving]
  - Vital functions abnormal [Recovering/Resolving]
  - Confusional state [Unknown]
  - Nystagmus [Unknown]
  - Breath sounds abnormal [Unknown]

NARRATIVE: CASE EVENT DATE: 20220801
